FAERS Safety Report 9985111 (Version 1)
Quarter: 2014Q1

REPORT INFORMATION
  Report Type: Report from Study
  Country: US (occurrence: US)
  Receive Date: 20140307
  Receipt Date: 20140307
  Transmission Date: 20141002
  Serious: No
  Sender: FDA-Public Use
  Company Number: US-ABBVIE-14P-163-1197074-00

PATIENT
  Age: 53 Year
  Sex: Female
  Weight: 120.76 kg

DRUGS (18)
  1. HUMIRA [Suspect]
     Indication: RHEUMATOID ARTHRITIS
     Route: 058
     Dates: start: 201311
  2. ATIVAN [Concomitant]
     Indication: ANXIETY
  3. SYNTHROID [Concomitant]
     Indication: HYPOTHYROIDISM
  4. FLEXERIL [Concomitant]
     Indication: BACK PAIN
  5. IBUPROFEN [Concomitant]
     Indication: RHEUMATOID ARTHRITIS
  6. TRAZODONE [Concomitant]
     Indication: BIPOLAR DISORDER
  7. TEGRETOL [Concomitant]
     Indication: BIPOLAR DISORDER
  8. CELEXA [Concomitant]
     Indication: DEPRESSION
  9. ZOCOR [Concomitant]
     Indication: BLOOD CHOLESTEROL INCREASED
  10. LISINOPRIL/HCTZ [Concomitant]
     Indication: HYPERTENSION
  11. AMLODIPINE [Concomitant]
     Indication: HYPERTENSION
  12. LATUDA [Concomitant]
     Indication: DEPRESSION
  13. FOLIC ACID [Concomitant]
     Indication: RHEUMATOID ARTHRITIS
  14. PROTONIX [Concomitant]
     Indication: GASTROOESOPHAGEAL REFLUX DISEASE
  15. SYMBICORT [Concomitant]
     Indication: CHRONIC OBSTRUCTIVE PULMONARY DISEASE
  16. PROAIR [Concomitant]
     Indication: CHRONIC OBSTRUCTIVE PULMONARY DISEASE
  17. LEVOCETIRIZINE [Concomitant]
     Indication: HYPERSENSITIVITY
  18. METHOTREXATE [Concomitant]
     Indication: RHEUMATOID ARTHRITIS

REACTIONS (1)
  - Injection site pain [Not Recovered/Not Resolved]
